FAERS Safety Report 11024852 (Version 1)
Quarter: 2015Q2

REPORT INFORMATION
  Report Type: Spontaneous
  Country: GB (occurrence: GB)
  Receive Date: 20150414
  Receipt Date: 20150414
  Transmission Date: 20150821
  Serious: Yes (Hospitalization)
  Sender: FDA-Public Use
  Company Number: GB-RANBAXY-2015RR-93851

PATIENT
  Age: 49 Year
  Sex: Female

DRUGS (4)
  1. CLARITHROMYCIN. [Suspect]
     Active Substance: CLARITHROMYCIN
     Indication: HELICOBACTER GASTRITIS
     Dosage: 500 MG, BID
     Route: 065
  2. CIPROFLOXACIN. [Suspect]
     Active Substance: CIPROFLOXACIN
     Indication: HELICOBACTER GASTRITIS
     Dosage: 500 MG, BID
     Route: 065
  3. AMOXICILLIN. [Interacting]
     Active Substance: AMOXICILLIN
     Indication: HELICOBACTER GASTRITIS
     Dosage: 1 G, BID
     Route: 065
  4. LANSOPRAZOLE. [Interacting]
     Active Substance: LANSOPRAZOLE
     Indication: HELICOBACTER GASTRITIS
     Dosage: 30 MG, BID
     Route: 065

REACTIONS (18)
  - Personality change [None]
  - Confusional state [None]
  - Conversion disorder [None]
  - Wrong drug administered [None]
  - Psychotic disorder [Recovered/Resolved]
  - Drug interaction [Recovered/Resolved]
  - Medication error [Recovered/Resolved]
  - Persecutory delusion [None]
  - Irritability [None]
  - Anxiety [None]
  - Paranoia [None]
  - Psychomotor hyperactivity [None]
  - Thinking abnormal [None]
  - Incoherent [None]
  - Screaming [None]
  - Drug dispensing error [None]
  - Hallucinations, mixed [None]
  - Agitation [None]
